FAERS Safety Report 22346578 (Version 5)
Quarter: 2023Q4

REPORT INFORMATION
  Report Type: Report from Study
  Country: US (occurrence: US)
  Receive Date: 20230520
  Receipt Date: 20231007
  Transmission Date: 20240109
  Serious: Yes (Life-Threatening, Other)
  Sender: FDA-Public Use
  Company Number: US-002147023-NVSC2023US115509

PATIENT
  Sex: Male

DRUGS (3)
  1. LEQVIO [Suspect]
     Active Substance: INCLISIRAN SODIUM
     Indication: Product used for unknown indication
     Dosage: UNK
     Route: 058
     Dates: start: 20230508
  2. LEQVIO [Suspect]
     Active Substance: INCLISIRAN SODIUM
     Dosage: UNK
     Route: 065
     Dates: start: 20230808
  3. INSULIN NOS [Suspect]
     Active Substance: INSULIN NOS
     Indication: Product used for unknown indication
     Dosage: UNK
     Route: 065

REACTIONS (12)
  - Traumatic liver injury [Unknown]
  - Fall [Unknown]
  - Internal haemorrhage [Unknown]
  - Hepatic haematoma [Unknown]
  - Nephrolithiasis [Unknown]
  - Accident [Unknown]
  - Pulmonary haematoma [Unknown]
  - Pleural effusion [Unknown]
  - Intra-abdominal fluid collection [Unknown]
  - Dyspepsia [Unknown]
  - Diarrhoea [Unknown]
  - Injection site joint pain [Recovered/Resolved]
